FAERS Safety Report 12785251 (Version 1)
Quarter: 2016Q3

REPORT INFORMATION
  Report Type: Spontaneous
  Country: US (occurrence: US)
  Receive Date: 20160927
  Receipt Date: 20160927
  Transmission Date: 20161109
  Serious: No
  Sender: FDA-Public Use
  Company Number: US-BAYER-2016-185429

PATIENT
  Age: 60 Year
  Sex: Male
  Weight: 95.25 kg

DRUGS (5)
  1. GABAPENTIN. [Concomitant]
     Active Substance: GABAPENTIN
  2. CLONAZEPAM. [Concomitant]
     Active Substance: CLONAZEPAM
  3. MELOXICAM. [Concomitant]
     Active Substance: MELOXICAM
  4. MIRALAX [Suspect]
     Active Substance: POLYETHYLENE GLYCOL 3350
     Indication: COLONOSCOPY
     Dosage: UNK
     Route: 048
  5. PRAMIPEXOLE. [Concomitant]
     Active Substance: PRAMIPEXOLE

REACTIONS (1)
  - Circumstance or information capable of leading to medication error [Unknown]
